FAERS Safety Report 7801916-6 (Version None)
Quarter: 2011Q4

REPORT INFORMATION
  Report Type: 
  Country: None (occurrence: None)
  Receive Date: 20111005
  Receipt Date: 20110919
  Transmission Date: 20120403
  Serious: Yes (Hospitalization)
  Sender: FDA-Public Use
  Company Number: JPI-P-017146

PATIENT
  Age: 46 Year
  Sex: Male

DRUGS (3)
  1. UNSPECIFIED MEDICATION [Concomitant]
  2. XYREM [Suspect]
     Indication: INSOMNIA
     Dosage: ORAL ; (4.5 GM,UP TO FOUR TIMES A DAY),ORAL
     Route: 048
     Dates: start: 20070601
  3. XYREM [Suspect]
     Indication: INSOMNIA
     Dosage: ORAL ; (4.5 GM,UP TO FOUR TIMES A DAY),ORAL
     Route: 048
     Dates: end: 20110821

REACTIONS (6)
  - CREUTZFELDT-JAKOB DISEASE [None]
  - RHABDOMYOLYSIS [None]
  - PARAPLEGIA [None]
  - TREMOR [None]
  - FALL [None]
  - INCORRECT DOSE ADMINISTERED [None]
